FAERS Safety Report 23298915 (Version 2)
Quarter: 2023Q4

REPORT INFORMATION
  Report Type: Spontaneous
  Country: US (occurrence: US)
  Receive Date: 20231215
  Receipt Date: 20231229
  Transmission Date: 20240109
  Serious: Yes (Hospitalization)
  Sender: FDA-Public Use
  Company Number: US-BoehringerIngelheim-2023-BI-277948

PATIENT
  Age: 92 Year
  Sex: Female

DRUGS (2)
  1. STIOLTO RESPIMAT [Suspect]
     Active Substance: OLODATEROL HYDROCHLORIDE\TIOTROPIUM BROMIDE MONOHYDRATE
     Indication: Emphysema
     Dosage: INHALATION SPRAY 1 PUFF IN THE MORNING; 1 PUFF AT NIGHT
     Dates: start: 20231027
  2. SPIRIVA RESPIMAT [Suspect]
     Active Substance: TIOTROPIUM BROMIDE
     Indication: Emphysema
     Dosage: INHALATION SPRAY 2 PUFFS
     Dates: end: 20231026

REACTIONS (3)
  - Candida infection [Not Recovered/Not Resolved]
  - Oropharyngeal pain [Not Recovered/Not Resolved]
  - Dyspnoea [Recovered/Resolved]

NARRATIVE: CASE EVENT DATE: 20230101
